FAERS Safety Report 13511005 (Version 1)
Quarter: 2017Q2

REPORT INFORMATION
  Report Type: Spontaneous
  Country: FR (occurrence: FR)
  Receive Date: 20170503
  Receipt Date: 20170503
  Transmission Date: 20170830
  Serious: Yes (Hospitalization, Other)
  Sender: FDA-Public Use
  Company Number: FR-SA-2017SA079257

PATIENT
  Age: 27 Year
  Sex: Male

DRUGS (87)
  1. CELLTOP [Suspect]
     Active Substance: ETOPOSIDE
     Indication: METASTASES TO LUNG
     Route: 065
     Dates: start: 20150811
  2. CISPLATIN. [Suspect]
     Active Substance: CISPLATIN
     Indication: METASTASES TO LUNG
     Route: 065
     Dates: start: 20150515
  3. HOLOXAN [Suspect]
     Active Substance: IFOSFAMIDE
     Indication: TESTICULAR MALIGNANT TERATOMA
     Route: 065
     Dates: start: 20150515
  4. HOLOXAN [Suspect]
     Active Substance: IFOSFAMIDE
     Indication: TESTIS CANCER
     Route: 065
     Dates: start: 20150616
  5. HOLOXAN [Suspect]
     Active Substance: IFOSFAMIDE
     Indication: METASTASES TO LUNG
     Route: 065
     Dates: start: 20150616
  6. HOLOXAN [Suspect]
     Active Substance: IFOSFAMIDE
     Indication: TESTICULAR MALIGNANT TERATOMA
     Route: 065
     Dates: start: 20150714
  7. HOLOXAN [Suspect]
     Active Substance: IFOSFAMIDE
     Indication: METASTASES TO LUNG
     Route: 065
     Dates: start: 20150811
  8. SOLUPRED [Suspect]
     Active Substance: PREDNISOLONE
     Indication: PRODUCT USED FOR UNKNOWN INDICATION
     Route: 065
     Dates: end: 20160930
  9. IPRATROPIUM [Suspect]
     Active Substance: IPRATROPIUM
     Indication: DYSPNOEA
     Route: 065
     Dates: start: 20160923
  10. LYSOPAINE [Concomitant]
     Active Substance: CETYLPYRIDINIUM CHLORIDE\LYSOZYME HYDROCHLORIDE
  11. CELLTOP [Suspect]
     Active Substance: ETOPOSIDE
     Indication: TESTICULAR CANCER METASTATIC
     Dosage: 3 COURSES(1 IN 1 CYCLICAL)
     Route: 065
  12. CELLTOP [Suspect]
     Active Substance: ETOPOSIDE
     Indication: TESTIS CANCER
     Route: 065
     Dates: start: 20150616
  13. CELLTOP [Suspect]
     Active Substance: ETOPOSIDE
     Indication: TESTICULAR CANCER METASTATIC
     Route: 065
     Dates: start: 20150616
  14. CELLTOP [Suspect]
     Active Substance: ETOPOSIDE
     Indication: TESTICULAR MALIGNANT TERATOMA
     Route: 065
     Dates: start: 20150811
  15. CISPLATIN. [Suspect]
     Active Substance: CISPLATIN
     Indication: TESTICULAR CANCER METASTATIC
     Route: 065
     Dates: start: 20150616
  16. CISPLATIN. [Suspect]
     Active Substance: CISPLATIN
     Indication: TESTICULAR CANCER METASTATIC
     Route: 065
     Dates: start: 20150714
  17. CISPLATIN. [Suspect]
     Active Substance: CISPLATIN
     Indication: METASTASES TO LUNG
     Route: 065
     Dates: start: 20150811
  18. HOLOXAN [Suspect]
     Active Substance: IFOSFAMIDE
     Indication: TESTIS CANCER
     Route: 065
     Dates: start: 20150515
  19. IFOSFAMIDE EG [Suspect]
     Active Substance: IFOSFAMIDE
     Indication: TESTICULAR GERM CELL CANCER METASTATIC
     Route: 042
     Dates: start: 20161008, end: 20161008
  20. TERBUTALINE [Suspect]
     Active Substance: TERBUTALINE
     Indication: DYSPNOEA
     Route: 065
     Dates: start: 20160923
  21. ONDANSETRON ACCORD [Suspect]
     Active Substance: ONDANSETRON
     Indication: PROPHYLAXIS
     Route: 042
     Dates: start: 20160924, end: 20160924
  22. ONDANSETRON [Concomitant]
     Active Substance: ONDANSETRON
     Dates: start: 20161006, end: 20161009
  23. LOVENOX [Suspect]
     Active Substance: ENOXAPARIN SODIUM
     Indication: PRODUCT USED FOR UNKNOWN INDICATION
     Route: 065
     Dates: end: 20160930
  24. CELLTOP [Suspect]
     Active Substance: ETOPOSIDE
     Indication: TESTICULAR MALIGNANT TERATOMA
     Route: 065
     Dates: start: 20150515
  25. CELLTOP [Suspect]
     Active Substance: ETOPOSIDE
     Indication: METASTASES TO LUNG
     Route: 065
     Dates: start: 20150714
  26. CELLTOP [Suspect]
     Active Substance: ETOPOSIDE
     Indication: TESTICULAR MALIGNANT TERATOMA
     Route: 065
     Dates: start: 20150714
  27. CISPLATIN. [Suspect]
     Active Substance: CISPLATIN
     Indication: METASTASES TO LUNG
     Route: 065
     Dates: start: 20150515
  28. CISPLATIN. [Suspect]
     Active Substance: CISPLATIN
     Indication: METASTASES TO LUNG
     Route: 065
     Dates: start: 20150616
  29. CISPLATIN. [Suspect]
     Active Substance: CISPLATIN
     Indication: METASTASES TO LUNG
     Route: 065
     Dates: start: 20150714
  30. CISPLATIN. [Suspect]
     Active Substance: CISPLATIN
     Indication: TESTICULAR CANCER METASTATIC
     Route: 065
     Dates: start: 20150811
  31. HOLOXAN [Suspect]
     Active Substance: IFOSFAMIDE
     Indication: TESTICULAR MALIGNANT TERATOMA
     Route: 065
     Dates: start: 20150616
  32. HOLOXAN [Suspect]
     Active Substance: IFOSFAMIDE
     Indication: TESTICULAR MALIGNANT TERATOMA
     Route: 065
     Dates: start: 20150811
  33. BIONOLYTE G5 [Suspect]
     Active Substance: DEXTROSE\POTASSIUM CHLORIDE\SODIUM CHLORIDE
     Indication: FLUID REPLACEMENT
     Route: 065
     Dates: start: 20161004, end: 20161006
  34. IFOSFAMIDE EG [Suspect]
     Active Substance: IFOSFAMIDE
     Indication: TESTICULAR GERM CELL CANCER METASTATIC
     Dosage: OVER 3 HOURS
     Route: 042
     Dates: start: 20160924, end: 20160924
  35. IFOSFAMIDE EG [Suspect]
     Active Substance: IFOSFAMIDE
     Indication: TESTICULAR GERM CELL CANCER METASTATIC
     Route: 042
     Dates: start: 20161006, end: 20161006
  36. IFOSFAMIDE EG [Suspect]
     Active Substance: IFOSFAMIDE
     Indication: TESTICULAR GERM CELL CANCER METASTATIC
     Route: 042
     Dates: start: 20161007, end: 20161007
  37. DIFFU K [Concomitant]
     Active Substance: POTASSIUM CHLORIDE
     Dates: start: 20161005, end: 20161011
  38. METHYLPREDNISOLONE. [Concomitant]
     Active Substance: METHYLPREDNISOLONE
  39. CELLTOP [Suspect]
     Active Substance: ETOPOSIDE
     Indication: TESTIS CANCER
     Route: 065
     Dates: start: 20150515
  40. CELLTOP [Suspect]
     Active Substance: ETOPOSIDE
     Indication: METASTASES TO LUNG
     Route: 065
     Dates: start: 20150515
  41. CISPLATIN. [Suspect]
     Active Substance: CISPLATIN
     Indication: TESTICULAR CANCER METASTATIC
     Dosage: 3 COURSES
     Route: 065
  42. CISPLATIN. [Suspect]
     Active Substance: CISPLATIN
     Indication: METASTASES TO LUNG
     Dosage: 3 COURSES
     Route: 065
  43. CISPLATIN. [Suspect]
     Active Substance: CISPLATIN
     Indication: TESTICULAR CANCER METASTATIC
     Route: 065
     Dates: start: 20150515
  44. CISPLATIN. [Suspect]
     Active Substance: CISPLATIN
     Indication: METASTASES TO LUNG
     Route: 065
     Dates: start: 20150811
  45. PACLITAXEL. [Suspect]
     Active Substance: PACLITAXEL
     Indication: TESTICULAR GERM CELL CANCER METASTATIC
     Dosage: FOR 3 HOURS
     Route: 042
     Dates: start: 20161005, end: 20161005
  46. CELLTOP [Suspect]
     Active Substance: ETOPOSIDE
     Indication: METASTASES TO LUNG
     Dosage: 3 COURSES(1 IN 1 CYCLICAL)
     Route: 065
  47. CELLTOP [Suspect]
     Active Substance: ETOPOSIDE
     Indication: METASTASES TO LUNG
     Route: 065
     Dates: start: 20150616
  48. CISPLATIN. [Suspect]
     Active Substance: CISPLATIN
     Indication: METASTASES TO LUNG
     Dosage: 3 COURSES
     Route: 065
  49. CISPLATIN. [Suspect]
     Active Substance: CISPLATIN
     Indication: TESTIS CANCER
     Route: 065
     Dates: start: 20150616
  50. SODIUM CHLORIDE. [Suspect]
     Active Substance: SODIUM CHLORIDE
     Indication: FLUID REPLACEMENT
     Dosage: ALTERNATIVELY WITH BIONOLYTE
     Route: 065
     Dates: start: 20160917, end: 20160927
  51. SODIUM CHLORIDE. [Suspect]
     Active Substance: SODIUM CHLORIDE
     Indication: FLUID REPLACEMENT
     Dosage: ALTERNATIVELY WITH BIONOLYTE
     Route: 065
     Dates: start: 20161005, end: 20161007
  52. BLEOMYCIN SULFATE [Suspect]
     Active Substance: BLEOMYCIN SULFATE
     Indication: TESTIS CANCER
     Dosage: 2 COURSES(1 IN 1 CYCLICAL)
     Route: 065
  53. DOLIPRANE [Suspect]
     Active Substance: ACETAMINOPHEN
     Indication: PRODUCT USED FOR UNKNOWN INDICATION
     Route: 065
     Dates: end: 20160930
  54. CELLTOP [Suspect]
     Active Substance: ETOPOSIDE
     Indication: TESTIS CANCER
     Route: 065
     Dates: start: 20150811
  55. CISPLATIN. [Suspect]
     Active Substance: CISPLATIN
     Indication: TESTIS CANCER
     Route: 065
     Dates: start: 20150515
  56. CISPLATIN. [Suspect]
     Active Substance: CISPLATIN
     Indication: TESTIS CANCER
     Route: 065
     Dates: start: 20150714
  57. CISPLATIN. [Suspect]
     Active Substance: CISPLATIN
     Indication: METASTASES TO LUNG
     Route: 065
     Dates: start: 20150714
  58. HOLOXAN [Suspect]
     Active Substance: IFOSFAMIDE
     Indication: METASTASES TO LUNG
     Route: 065
     Dates: start: 20150515
  59. HOLOXAN [Suspect]
     Active Substance: IFOSFAMIDE
     Indication: TESTICULAR CANCER METASTATIC
     Route: 065
     Dates: start: 20150616
  60. HOLOXAN [Suspect]
     Active Substance: IFOSFAMIDE
     Indication: TESTIS CANCER
     Route: 065
     Dates: start: 20150714
  61. HOLOXAN [Suspect]
     Active Substance: IFOSFAMIDE
     Indication: TESTICULAR CANCER METASTATIC
     Route: 065
     Dates: start: 20150714
  62. LOW-MOLECULAR-WEIGHT HEPARIN SODIUM [Suspect]
     Active Substance: HEPARIN SODIUM
     Indication: PRODUCT USED FOR UNKNOWN INDICATION
     Route: 065
     Dates: start: 20160920
  63. PACLITAXEL. [Suspect]
     Active Substance: PACLITAXEL
     Indication: TESTICULAR GERM CELL CANCER METASTATIC
     Dosage: FOR 3 HOURS
     Route: 042
     Dates: start: 20160921, end: 20160921
  64. CELLTOP [Suspect]
     Active Substance: ETOPOSIDE
     Indication: TESTIS CANCER
     Dosage: 3 COURSES(1 IN 1 CYCLICAL)
     Route: 065
  65. CELLTOP [Suspect]
     Active Substance: ETOPOSIDE
     Indication: TESTICULAR MALIGNANT TERATOMA
     Dosage: 3 COURSES(1 IN 1 CYCLICAL)
     Route: 065
  66. CELLTOP [Suspect]
     Active Substance: ETOPOSIDE
     Indication: TESTICULAR CANCER METASTATIC
     Route: 065
     Dates: start: 20150515
  67. HOLOXAN [Suspect]
     Active Substance: IFOSFAMIDE
     Indication: TESTIS CANCER
     Route: 065
     Dates: start: 20150811
  68. BIONOLYTE G5 [Suspect]
     Active Substance: DEXTROSE\POTASSIUM CHLORIDE\SODIUM CHLORIDE
     Indication: FLUID REPLACEMENT
     Route: 065
     Dates: start: 20160916, end: 20160926
  69. IFOSFAMIDE EG [Suspect]
     Active Substance: IFOSFAMIDE
     Indication: TESTICULAR GERM CELL CANCER METASTATIC
     Dosage: OVER 3 HOURS
     Route: 042
     Dates: start: 20160922, end: 20160922
  70. OXYNORM [Suspect]
     Active Substance: OXYCODONE HYDROCHLORIDE
     Indication: PRODUCT USED FOR UNKNOWN INDICATION
     Route: 065
     Dates: end: 20160930
  71. RED BLOOD CELLS [Concomitant]
     Active Substance: HUMAN RED BLOOD CELL
     Dosage: DOSE:2 UNIT(S)
     Dates: start: 20161005
  72. TOPLEXIL [Concomitant]
     Active Substance: UNSPECIFIED INGREDIENT
  73. CELLTOP [Suspect]
     Active Substance: ETOPOSIDE
     Indication: TESTICULAR MALIGNANT TERATOMA
     Route: 065
     Dates: start: 20150616
  74. CELLTOP [Suspect]
     Active Substance: ETOPOSIDE
     Indication: TESTIS CANCER
     Route: 065
     Dates: start: 20150714
  75. CELLTOP [Suspect]
     Active Substance: ETOPOSIDE
     Indication: TESTICULAR CANCER METASTATIC
     Route: 065
     Dates: start: 20150714
  76. CELLTOP [Suspect]
     Active Substance: ETOPOSIDE
     Indication: TESTICULAR CANCER METASTATIC
     Route: 065
     Dates: start: 20150811
  77. CISPLATIN. [Suspect]
     Active Substance: CISPLATIN
     Indication: TESTIS CANCER
     Dosage: 3 COURSES
     Route: 065
  78. CISPLATIN. [Suspect]
     Active Substance: CISPLATIN
     Indication: METASTASES TO LUNG
     Route: 065
     Dates: start: 20150616
  79. CISPLATIN. [Suspect]
     Active Substance: CISPLATIN
     Indication: TESTIS CANCER
     Route: 065
     Dates: start: 20150811
  80. HOLOXAN [Suspect]
     Active Substance: IFOSFAMIDE
     Indication: TESTICULAR CANCER METASTATIC
     Route: 065
     Dates: start: 20150515
  81. HOLOXAN [Suspect]
     Active Substance: IFOSFAMIDE
     Indication: METASTASES TO LUNG
     Route: 065
     Dates: start: 20150714
  82. HOLOXAN [Suspect]
     Active Substance: IFOSFAMIDE
     Indication: TESTICULAR CANCER METASTATIC
     Route: 065
     Dates: start: 20150811
  83. METHYLPREDNISOLONE SODIUM SUCCINATE. [Suspect]
     Active Substance: METHYLPREDNISOLONE SODIUM SUCCINATE
     Indication: PRODUCT USED FOR UNKNOWN INDICATION
     Route: 042
     Dates: start: 20160921, end: 20160930
  84. UROMITEXAN [Suspect]
     Active Substance: MESNA
     Indication: PROPHYLAXIS
     Route: 042
     Dates: start: 20160922, end: 20160924
  85. IFOSFAMIDE EG [Suspect]
     Active Substance: IFOSFAMIDE
     Indication: TESTICULAR GERM CELL CANCER METASTATIC
     Dosage: OVER 3 HOURS
     Route: 042
     Dates: start: 20160923, end: 20160923
  86. IFOSFAMIDE EG [Suspect]
     Active Substance: IFOSFAMIDE
     Indication: TESTICULAR GERM CELL CANCER METASTATIC
     Route: 042
     Dates: start: 20161008, end: 20161008
  87. PLITICAN [Concomitant]
     Active Substance: ALIZAPRIDE HYDROCHLORIDE
     Dates: start: 20161007, end: 20161011

REACTIONS (19)
  - Metastases to lung [Unknown]
  - Adrenal mass [Unknown]
  - General physical health deterioration [Unknown]
  - Formication [Recovered/Resolved]
  - Encephalopathy [Recovered/Resolved]
  - Neoplasm progression [Unknown]
  - Pain in extremity [Unknown]
  - Dyspnoea [Unknown]
  - Malaise [Unknown]
  - Testicular malignant teratoma [Unknown]
  - Crying [Unknown]
  - Malignant neoplasm progression [Unknown]
  - Hyponatraemia [Unknown]
  - Confusional state [Recovered/Resolved]
  - Testicular cancer metastatic [Unknown]
  - Pulmonary function test decreased [Unknown]
  - Nausea [Unknown]
  - Hallucination, visual [Recovered/Resolved]
  - Anaemia [Unknown]

NARRATIVE: CASE EVENT DATE: 20160914
